FAERS Safety Report 4301624-2 (Version None)
Quarter: 2004Q1

REPORT INFORMATION
  Report Type: 
  Country: None (occurrence: None)
  Receive Date: 20040218
  Receipt Date: 20031028
  Transmission Date: 20041129
  Serious: Yes (Other)
  Sender: FDA-Public Use
  Company Number: 2003-10-2973

PATIENT
  Age: 57 Year
  Sex: Female
  Weight: 122.4712 kg

DRUGS (5)
  1. PEG-INTRON [Suspect]
     Indication: HEPATITIS C
     Dosage: 150 MCG QWK SUBCUTANEOUS
     Route: 058
     Dates: start: 20030906, end: 20030913
  2. REBETOL [Suspect]
     Indication: HEPATITIS C
     Dosage: ORAL
     Route: 048
     Dates: start: 20030906, end: 20030913
  3. GLUCOPHAGE [Concomitant]
  4. GLUCOTROL [Concomitant]
  5. INSULIN [Concomitant]

REACTIONS (5)
  - COUGH [None]
  - DRUG INTERACTION [None]
  - RASH PAPULAR [None]
  - RASH VESICULAR [None]
  - WEIGHT DECREASED [None]
